FAERS Safety Report 8265006-3 (Version None)
Quarter: 2012Q2

REPORT INFORMATION
  Report Type: 
  Country: None (occurrence: None)
  Receive Date: 20120403
  Receipt Date: 20120321
  Transmission Date: 20120825
  Serious: Yes (Death, Hospitalization, Other)
  Sender: FDA-Public Use
  Company Number: 2012070213

PATIENT
  Age: 60 Year
  Sex: Male

DRUGS (15)
  1. METFORMIN HCL [Suspect]
     Indication: TYPE 2 DIABETES MELLITUS
     Dosage: 1.5 G, UNK
     Dates: end: 20110711
  2. ASPIRIN [Suspect]
     Dosage: 75 MG, UNK
     Dates: end: 20110722
  3. DALTEPARIN SODIUM [Suspect]
     Dosage: 1 DOSAGE FORM 1 DAY
     Dates: start: 20110711
  4. INSULATARD NPH HUMAN [Suspect]
     Indication: DIABETES MELLITUS
     Dosage: 8 INTERNATIONAL UNIT
     Dates: start: 20110718
  5. PLACEBO [Suspect]
     Indication: TYPE 2 DIABETES MELLITUS
     Dosage: UNK
     Dates: start: 20110414, end: 20110711
  6. FUROSEMIDE [Concomitant]
  7. SPIRONOLACTONE [Concomitant]
  8. OXYCONTIN [Concomitant]
  9. IMPORTAL (LACTITOL) [Concomitant]
  10. SAXAGLIPTIN (SAXAGLIPTIN) [Suspect]
     Indication: TYPE 2 DIABETES MELLITUS
     Dosage: UNK
     Dates: start: 20110414, end: 20110711
  11. NOVOLOG [Suspect]
     Indication: DIABETES MELLITUS
     Dosage: 8 INTERNATIONAL UNIT
     Dates: start: 20110711, end: 20110719
  12. SODIUM PICOSULFATE (SODIUM PICOSULFATE) [Suspect]
     Dosage: UNK
     Dates: start: 20110712, end: 20110725
  13. LACTULOSE [Suspect]
     Dosage: UNK
     Dates: start: 20110720, end: 20110725
  14. CLOPIDOGREL [Suspect]
     Dosage: 75 MG, UNK
  15. OMEPRAZOLE [Concomitant]

REACTIONS (11)
  - CONSTIPATION [None]
  - SUDDEN CARDIAC DEATH [None]
  - PULMONARY EMBOLISM [None]
  - INGUINAL HERNIA [None]
  - PANCREATITIS ACUTE [None]
  - HAEMATURIA [None]
  - DEHYDRATION [None]
  - NAUSEA [None]
  - PORTAL VEIN THROMBOSIS [None]
  - ASCITES [None]
  - ARRHYTHMIA [None]
